FAERS Safety Report 7542766-8 (Version None)
Quarter: 2011Q2

REPORT INFORMATION
  Report Type: 
  Country: None (occurrence: None)
  Receive Date: 20110613
  Receipt Date: 20110602
  Transmission Date: 20111010
  Serious: Yes (Hospitalization)
  Sender: FDA-Public Use
  Company Number: B0707621A

PATIENT
  Age: 30 Year
  Sex: Female
  Weight: 55 kg

DRUGS (8)
  1. WARFARIN SODIUM [Concomitant]
     Indication: IDIOPATHIC THROMBOCYTOPENIC PURPURA
     Route: 048
     Dates: start: 20110325
  2. PRIMOBOLAN [Concomitant]
     Indication: IDIOPATHIC THROMBOCYTOPENIC PURPURA
     Route: 048
  3. PROMACTA [Suspect]
     Dosage: 25MG PER DAY
     Route: 048
     Dates: start: 20110315
  4. NEORAL [Concomitant]
     Indication: IDIOPATHIC THROMBOCYTOPENIC PURPURA
     Route: 048
  5. GLYCEREB [Concomitant]
     Route: 048
     Dates: start: 20110318, end: 20110324
  6. HEPARIN SODIUM [Concomitant]
     Indication: THROMBOLYSIS
     Dates: start: 20110318, end: 20110328
  7. PREDNISOLONE [Suspect]
     Indication: IDIOPATHIC THROMBOCYTOPENIC PURPURA
     Dosage: 27.5MG PER DAY
     Route: 048
  8. PROMACTA [Suspect]
     Indication: IDIOPATHIC THROMBOCYTOPENIC PURPURA
     Dosage: 12.5MG PER DAY
     Route: 048
     Dates: start: 20110219, end: 20110314

REACTIONS (1)
  - CEREBRAL INFARCTION [None]
